FAERS Safety Report 9376768 (Version 1)
Quarter: 2013Q2

REPORT INFORMATION
  Report Type: Spontaneous
  Country: US (occurrence: None)
  Receive Date: 20130628
  Receipt Date: 20130628
  Transmission Date: 20140414
  Serious: No
  Sender: FDA-Public Use
  Company Number: None

PATIENT
  Age: 40 Year
  Sex: Female

DRUGS (1)
  1. HUMIRA [Suspect]
     Indication: PSORIATIC ARTHROPATHY
     Dosage: EVERY 2 WEEKS
     Route: 058
     Dates: start: 20130424

REACTIONS (3)
  - Device malfunction [None]
  - Incorrect route of drug administration [None]
  - Hypoaesthesia oral [None]
